FAERS Safety Report 22539408 (Version 3)
Quarter: 2024Q1

REPORT INFORMATION
  Report Type: Spontaneous
  Country: US (occurrence: US)
  Receive Date: 20230609
  Receipt Date: 20240109
  Transmission Date: 20240409
  Serious: No
  Sender: FDA-Public Use
  Company Number: US-ORGANON-O2306USA000084

PATIENT
  Age: 78 Year
  Sex: Male

DRUGS (4)
  1. ASMANEX [Suspect]
     Active Substance: MOMETASONE FUROATE
     Dosage: 220MCG ONCE DAILY
     Dates: start: 202301
  2. ASMANEX [Suspect]
     Active Substance: MOMETASONE FUROATE
     Dosage: 220MCG ONCE DAILY
     Dates: start: 202302
  3. ASMANEX [Suspect]
     Active Substance: MOMETASONE FUROATE
     Dosage: 220MCG ONCE DAILY
     Dates: start: 202304
  4. ASMANEX [Suspect]
     Active Substance: MOMETASONE FUROATE
     Dosage: 220 MICROGRAM
     Dates: start: 20231217

REACTIONS (9)
  - Device malfunction [Unknown]
  - Poor quality device used [Unknown]
  - Device malfunction [Unknown]
  - Poor quality device used [Unknown]
  - Device malfunction [Unknown]
  - Poor quality device used [Unknown]
  - Device malfunction [Unknown]
  - Poor quality device used [Unknown]
  - No adverse event [Unknown]

NARRATIVE: CASE EVENT DATE: 20230101
